FAERS Safety Report 5493161-7 (Version None)
Quarter: 2007Q4

REPORT INFORMATION
  Report Type: 
  Country: None (occurrence: None)
  Receive Date: 20071023
  Receipt Date: 20071015
  Transmission Date: 20080405
  Serious: Yes (Other)
  Sender: FDA-Public Use
  Company Number: B0492167A

PATIENT
  Sex: Male

DRUGS (1)
  1. NIQUITIN CQ GUM 2MG [Suspect]
     Dosage: 10GUM PER DAY
     Route: 002

REACTIONS (1)
  - DEPENDENCE [None]
